FAERS Safety Report 13356989 (Version 1)
Quarter: 2017Q1

REPORT INFORMATION
  Report Type: Spontaneous
  Country: US (occurrence: US)
  Receive Date: 20170321
  Receipt Date: 20170321
  Transmission Date: 20170429
  Serious: No
  Sender: FDA-Public Use
  Company Number: US-CELGENEUS-USA-2017035362

PATIENT
  Age: 44 Year
  Sex: Female

DRUGS (2)
  1. OTEZLA [Suspect]
     Active Substance: APREMILAST
     Indication: PSORIASIS
     Dosage: 60 MILLIGRAM
     Route: 048
     Dates: start: 20151201
  2. OTEZLA [Suspect]
     Active Substance: APREMILAST
     Indication: PSORIATIC ARTHROPATHY

REACTIONS (2)
  - Diarrhoea [Recovered/Resolved]
  - Therapeutic response decreased [Recovered/Resolved]

NARRATIVE: CASE EVENT DATE: 20161101
